FAERS Safety Report 22340190 (Version 1)
Quarter: 2023Q2

REPORT INFORMATION
  Report Type: Spontaneous
  Country: US (occurrence: None)
  Receive Date: 20230517
  Receipt Date: 20230517
  Transmission Date: 20230721
  Serious: Yes (Other)
  Sender: FDA-Public Use
  Company Number: None

PATIENT
  Age: 74 Year
  Sex: Male

DRUGS (1)
  1. NUBEQA [Suspect]
     Active Substance: DAROLUTAMIDE
     Dosage: FREQUENCY : TWICE A DAY;?
     Route: 048
     Dates: start: 20230510

REACTIONS (6)
  - Pain [None]
  - Pain in extremity [None]
  - Pain in extremity [None]
  - Abdominal distension [None]
  - Dry mouth [None]
  - Rash [None]

NARRATIVE: CASE EVENT DATE: 20230510
